FAERS Safety Report 6167918-3 (Version None)
Quarter: 2009Q2

REPORT INFORMATION
  Report Type: 
  Country: None (occurrence: None)
  Receive Date: 20090427
  Receipt Date: 20090128
  Transmission Date: 20091009
  Serious: No
  Sender: FDA-Public Use
  Company Number: US-BAYER-200910913BCC

PATIENT
  Age: 65 Year
  Sex: Female

DRUGS (3)
  1. ALEVE (CAPLET) [Suspect]
     Indication: NERVE COMPRESSION
     Dosage: UNIT DOSE: 220 MG
     Route: 048
     Dates: start: 20090127
  2. ALEVE [Concomitant]
     Indication: NERVE COMPRESSION
     Route: 048
  3. LASIX [Concomitant]
     Route: 065

REACTIONS (1)
  - NO ADVERSE EVENT [None]
